FAERS Safety Report 10726438 (Version 1)
Quarter: 2015Q1

REPORT INFORMATION
  Report Type: Spontaneous
  Country: US (occurrence: None)
  Receive Date: 20150120
  Receipt Date: 20150120
  Transmission Date: 20150721
  Serious: Yes (Hospitalization)
  Sender: FDA-Public Use
  Company Number: None

PATIENT
  Age: 60 Year
  Sex: Female
  Weight: 69.6 kg

DRUGS (9)
  1. LANSOPRAZOLE. [Concomitant]
     Active Substance: LANSOPRAZOLE
  2. ABACAVIR-LAMIVUDINE [Concomitant]
  3. CALCITRIOL. [Concomitant]
     Active Substance: CALCITRIOL
  4. LORAZEPAM. [Concomitant]
     Active Substance: LORAZEPAM
  5. DARUNAVIR [Concomitant]
     Active Substance: DARUNAVIR
  6. CYMBALTA [Concomitant]
     Active Substance: DULOXETINE HYDROCHLORIDE
  7. SOFOSBUVIR 400MG [Suspect]
     Active Substance: SOFOSBUVIR
     Indication: HEPATITIS C
     Route: 048
     Dates: start: 20140326, end: 20140909
  8. RITONAVIR. [Concomitant]
     Active Substance: RITONAVIR
  9. RIBAVIRIN 1000 MG [Suspect]
     Active Substance: RIBAVIRIN
     Indication: HEPATITIS C
     Route: 048
     Dates: start: 20140326, end: 20140909

REACTIONS (7)
  - Chills [None]
  - Diarrhoea [None]
  - Bronchitis [None]
  - Cough [None]
  - Pyrexia [None]
  - Productive cough [None]
  - Hypophagia [None]

NARRATIVE: CASE EVENT DATE: 20140731
